FAERS Safety Report 20952870 (Version 1)
Quarter: 2022Q2

REPORT INFORMATION
  Report Type: Spontaneous
  Country: US (occurrence: US)
  Receive Date: 20220613
  Receipt Date: 20220613
  Transmission Date: 20220720
  Serious: Yes (Life-Threatening, Other)
  Sender: FDA-Public Use
  Company Number: US-PFIZER INC-202200805142

PATIENT
  Age: 4 Month
  Sex: Male
  Weight: 6 kg

DRUGS (3)
  1. VECURONIUM BROMIDE [Suspect]
     Active Substance: VECURONIUM BROMIDE
     Indication: Movement disorder
     Dosage: 1 MCG/KG/MIN (0.06 MG/KG/HR)
     Route: 042
  2. VECURONIUM BROMIDE [Suspect]
     Active Substance: VECURONIUM BROMIDE
     Indication: Cardiac disorder
     Dosage: 5 MCG/KG/MIN (0.3 MG/KG/HR) TITRATED
     Route: 042
  3. FENTANYL CITRATE [Concomitant]
     Active Substance: FENTANYL CITRATE
     Indication: Analgesic therapy
     Dosage: 2 UG/KG (MCG/KG/HR) TITRATED
     Route: 042

REACTIONS (1)
  - Neuromuscular blockade [Recovered/Resolved]
